FAERS Safety Report 7281666-8 (Version None)
Quarter: 2010Q4

REPORT INFORMATION
  Report Type: 
  Country: None (occurrence: None)
  Receive Date: 20101221
  Receipt Date: 20100330
  Transmission Date: 20110411
  Serious: Yes (Other)
  Sender: FDA-Public Use
  Company Number: WAES 1003USA04783

PATIENT
  Age: 49 Year
  Sex: Female
  Weight: 93.8946 kg

DRUGS (4)
  1. JANUVIA [Suspect]
     Indication: TYPE 2 DIABETES MELLITUS
     Dosage: 100 MG/DAILY/PO
     Route: 048
     Dates: start: 20090511, end: 20100201
  2. HYDROCHLOROTHIAZIDE [Concomitant]
  3. LISINOPRIL [Concomitant]
  4. METFORMIN [Concomitant]

REACTIONS (3)
  - MALAISE [None]
  - PANCREATITIS [None]
  - TRANSAMINASES INCREASED [None]
